FAERS Safety Report 25246232 (Version 1)
Quarter: 2025Q2

REPORT INFORMATION
  Report Type: Spontaneous
  Country: US (occurrence: US)
  Receive Date: 20250428
  Receipt Date: 20250428
  Transmission Date: 20250716
  Serious: Yes (Other)
  Sender: ELI LILLY AND COMPANY
  Company Number: US-ELI_LILLY_AND_COMPANY-US202504015911

PATIENT
  Age: 80 Year
  Sex: Female

DRUGS (10)
  1. HUMALOG [Suspect]
     Active Substance: INSULIN LISPRO
     Indication: Type 2 diabetes mellitus
     Route: 058
     Dates: start: 202405
  2. HUMALOG [Suspect]
     Active Substance: INSULIN LISPRO
     Indication: Type 2 diabetes mellitus
     Route: 058
     Dates: start: 202405
  3. HUMALOG [Suspect]
     Active Substance: INSULIN LISPRO
     Indication: Type 2 diabetes mellitus
     Route: 058
     Dates: start: 202405
  4. HUMALOG [Suspect]
     Active Substance: INSULIN LISPRO
     Indication: Type 2 diabetes mellitus
     Route: 058
     Dates: start: 202405
  5. HUMALOG [Suspect]
     Active Substance: INSULIN LISPRO
     Route: 058
  6. HUMALOG [Suspect]
     Active Substance: INSULIN LISPRO
     Route: 058
  7. HUMALOG [Suspect]
     Active Substance: INSULIN LISPRO
     Route: 058
  8. HUMALOG [Suspect]
     Active Substance: INSULIN LISPRO
     Route: 058
  9. HUMALOG [Suspect]
     Active Substance: INSULIN LISPRO
     Route: 058
  10. HUMALOG [Suspect]
     Active Substance: INSULIN LISPRO
     Route: 058

REACTIONS (2)
  - Dementia [Unknown]
  - Accidental underdose [Unknown]

NARRATIVE: CASE EVENT DATE: 20250201
